FAERS Safety Report 10545361 (Version 3)
Quarter: 2015Q1

REPORT INFORMATION
  Report Type: Spontaneous
  Country: US (occurrence: US)
  Receive Date: 20141027
  Receipt Date: 20150327
  Transmission Date: 20150720
  Serious: Yes (Other)
  Sender: FDA-Public Use
  Company Number: US-PFIZER INC-2014290668

PATIENT
  Age: 63 Year
  Sex: Female

DRUGS (7)
  1. INLYTA [Suspect]
     Active Substance: AXITINIB
     Indication: METASTATIC RENAL CELL CARCINOMA
     Dosage: 5 MG, 2X/DAY (EVERY 12 HRS)
     Route: 048
     Dates: start: 20140505, end: 20141016
  2. INLYTA [Suspect]
     Active Substance: AXITINIB
     Dosage: 1 UNK, UNK
  3. LEVOTHYROXINE [Concomitant]
     Active Substance: LEVOTHYROXINE
     Dosage: 75 ?G, UNK (FOR ABOUT 3 MONTHS)
  4. INLYTA [Suspect]
     Active Substance: AXITINIB
     Dosage: 4 MG, 2X/DAY (EVERY 12 HRS)
     Dates: start: 20150106
  5. INLYTA [Suspect]
     Active Substance: AXITINIB
     Dosage: 5 MG, UNK
     Route: 048
     Dates: start: 201405
  6. INLYTA [Suspect]
     Active Substance: AXITINIB
     Dosage: 3 MG, 2X/DAY (EVERY 12 HRS)
     Dates: start: 20141024, end: 20150106
  7. LEVOTHYROXINE [Concomitant]
     Active Substance: LEVOTHYROXINE
     Dosage: 50 ?G, 1X/DAY
     Dates: start: 20141215

REACTIONS (6)
  - Weight decreased [Not Recovered/Not Resolved]
  - Oral pain [Recovered/Resolved]
  - Disease progression [Not Recovered/Not Resolved]
  - Oral pain [Unknown]
  - Metastatic renal cell carcinoma [Not Recovered/Not Resolved]
  - Feeding disorder [Recovered/Resolved]
